FAERS Safety Report 15982113 (Version 2)
Quarter: 2019Q1

REPORT INFORMATION
  Report Type: Spontaneous
  Country: US (occurrence: US)
  Receive Date: 20190219
  Receipt Date: 20190305
  Transmission Date: 20190418
  Serious: Yes (Other)
  Sender: FDA-Public Use
  Company Number: US-PFIZER INC-20599

PATIENT
  Age: 15 Year
  Sex: Male

DRUGS (17)
  1. TOPOTECAN HYDROCHLORIDE. [Suspect]
     Active Substance: TOPOTECAN HYDROCHLORIDE
     Indication: ACUTE LYMPHOCYTIC LEUKAEMIA
     Dosage: FREQ: PER_CYCLE
     Route: 065
  2. MELPHALAN. [Suspect]
     Active Substance: MELPHALAN
     Indication: LEUKAEMIA RECURRENT
     Dosage: FREQ: PER_CYCLE
     Route: 065
  3. OKT3 ANTIBODIES [Suspect]
     Indication: BONE MARROW TRANSPLANT
  4. CYTARABINE. [Suspect]
     Active Substance: CYTARABINE
     Indication: LYMPHOCYTIC LEUKAEMIA
  5. TOPOTECAN HYDROCHLORIDE. [Suspect]
     Active Substance: TOPOTECAN HYDROCHLORIDE
     Indication: LYMPHOCYTIC LEUKAEMIA
  6. HYDROCORTISONE SODIUM SUCCINATE [Concomitant]
     Active Substance: HYDROCORTISONE SODIUM SUCCINATE
     Indication: LEUKAEMIA RECURRENT
     Dosage: UNK
     Route: 065
  7. FLUDARABINE PHOSPHATE. [Suspect]
     Active Substance: FLUDARABINE PHOSPHATE
     Indication: LEUKAEMIA RECURRENT
     Dosage: FREQ: PER_CYCLE
     Route: 065
  8. METHOTREXATE SODIUM. [Suspect]
     Active Substance: METHOTREXATE SODIUM
     Indication: LEUKAEMIA RECURRENT
     Dosage: FREQ: PER_CYCLE
     Route: 037
  9. MELPHALAN. [Suspect]
     Active Substance: MELPHALAN
     Indication: BONE MARROW TRANSPLANT
  10. HYDROCORTISONE ACETATE. [Suspect]
     Active Substance: HYDROCORTISONE ACETATE
     Indication: LYMPHOCYTIC LEUKAEMIA
     Dosage: UNK
  11. THIOTEPA. [Suspect]
     Active Substance: THIOTEPA
     Indication: LEUKAEMIA RECURRENT
     Dosage: FREQ: PER_CYCLE
     Route: 065
  12. MUROMONAB-CD3 [Suspect]
     Active Substance: MUROMONAB-CD3
     Indication: BONE MARROW TRANSPLANT
     Dosage: UNK
  13. CYTARABINE. [Suspect]
     Active Substance: CYTARABINE
     Indication: LEUKAEMIA RECURRENT
     Dosage: FREQ: PER_CYCLE
     Route: 065
  14. FLUDARABINE PHOSPHATE. [Suspect]
     Active Substance: FLUDARABINE PHOSPHATE
     Indication: BONE MARROW TRANSPLANT
  15. METHOTREXATE SODIUM. [Suspect]
     Active Substance: METHOTREXATE SODIUM
     Indication: LYMPHOCYTIC LEUKAEMIA
  16. OKT3 [Suspect]
     Active Substance: MUROMONAB-CD3
     Indication: LEUKAEMIA RECURRENT
     Dosage: FREQ: PER_CYCLE
     Route: 065
  17. THIOTEPA. [Suspect]
     Active Substance: THIOTEPA
     Indication: BONE MARROW TRANSPLANT

REACTIONS (3)
  - Axonal neuropathy [Not Recovered/Not Resolved]
  - Myelopathy [Not Recovered/Not Resolved]
  - Leukoencephalopathy [Not Recovered/Not Resolved]
